FAERS Safety Report 5494015-2 (Version None)
Quarter: 2007Q4

REPORT INFORMATION
  Report Type: 
  Country: None (occurrence: None)
  Receive Date: 20071019
  Receipt Date: 20071010
  Transmission Date: 20080405
  Serious: Yes (Hospitalization, Other)
  Sender: FDA-Public Use
  Company Number: 163-21880-07040184

PATIENT
  Age: 67 Year
  Sex: Male
  Weight: 74.8435 kg

DRUGS (9)
  1. REVLIMID [Suspect]
     Indication: MULTIPLE MYELOMA
     Dosage: 25 MG, DAILY, ORAL; 15 MG, DAILY X21 DAYS, ORAL
     Route: 048
     Dates: start: 20070222, end: 20070401
  2. REVLIMID [Suspect]
     Indication: MULTIPLE MYELOMA
     Dosage: 25 MG, DAILY, ORAL; 15 MG, DAILY X21 DAYS, ORAL
     Route: 048
     Dates: start: 20070401
  3. DEXAMETHASONE TAB [Concomitant]
  4. XANAX [Concomitant]
  5. POTASSIUM CL (POTASSIUM CHLORIDE) [Concomitant]
  6. TEMAZEPAM [Concomitant]
  7. ASPIRIN [Concomitant]
  8. NEXIUM [Concomitant]
  9. AREDIA [Concomitant]

REACTIONS (12)
  - ATRIAL FIBRILLATION [None]
  - ATRIAL FLUTTER [None]
  - CELLULITIS [None]
  - DIZZINESS [None]
  - FALL [None]
  - FULL BLOOD COUNT DECREASED [None]
  - GAIT DISTURBANCE [None]
  - GASTRIC ULCER [None]
  - HAND FRACTURE [None]
  - INSOMNIA [None]
  - JOINT DISLOCATION [None]
  - MUSCLE SPASMS [None]
